FAERS Safety Report 4482076-9 (Version None)
Quarter: 2004Q4

REPORT INFORMATION
  Report Type: 
  Country: None (occurrence: None)
  Receive Date: 20041020
  Receipt Date: 20041001
  Transmission Date: 20050328
  Serious: Yes (Hospitalization)
  Sender: FDA-Public Use
  Company Number: JP_040804170

PATIENT
  Age: 74 Year
  Sex: Female
  Weight: 53 kg

DRUGS (5)
  1. EVISTA [Suspect]
     Dosage: 60 MG DAY
     Dates: start: 20040101
  2. WARFARIN SODIUM [Concomitant]
  3. LOXONIN (LOXOPROFEN SODIUM) [Concomitant]
  4. SOLON (SOFALCONE) [Concomitant]
  5. DIOVAN [Concomitant]

REACTIONS (5)
  - CARDIAC FAILURE [None]
  - DYSPNOEA [None]
  - HAEMOLYSIS [None]
  - OEDEMA PERIPHERAL [None]
  - STRIDOR [None]
